FAERS Safety Report 5448054-8 (Version None)
Quarter: 2007Q3

REPORT INFORMATION
  Report Type: 
  Country: None (occurrence: None)
  Receive Date: 20070910
  Receipt Date: 20070831
  Transmission Date: 20080115
  Serious: Yes (Hospitalization)
  Sender: FDA-Public Use
  Company Number: PL-MERCK-0708POL00048

PATIENT
  Age: 2 Month
  Sex: Male
  Weight: 4 kg

DRUGS (5)
  1. CANCIDAS [Suspect]
     Route: 041
  2. CANCIDAS [Suspect]
     Route: 041
  3. VANCOMYCIN [Concomitant]
     Route: 065
  4. CILASTATIN SODIUM AND IMIPENEM [Concomitant]
     Route: 065
  5. AMPHOTERICIN B [Concomitant]
     Route: 065

REACTIONS (9)
  - ALANINE AMINOTRANSFERASE INCREASED [None]
  - ASPARTATE AMINOTRANSFERASE INCREASED [None]
  - BLOOD CREATININE INCREASED [None]
  - BLOOD UREA INCREASED [None]
  - CARDIAC OUTPUT [None]
  - ENDOCARDITIS [None]
  - OFF LABEL USE [None]
  - PNEUMONIA [None]
  - SEPSIS [None]
